FAERS Safety Report 8906623 (Version 2)
Quarter: 2012Q4

REPORT INFORMATION
  Report Type: 
  Country: US (occurrence: US)
  Receive Date: 20121114
  Receipt Date: 20121206
  Transmission Date: 20130627
  Serious: Yes (Death, Hospitalization, Other)
  Sender: FDA-Public Use
  Company Number: US-ELI_LILLY_AND_COMPANY-US201211003309

PATIENT
  Age: 77 Year
  Sex: Male
  Weight: 77.1 kg

DRUGS (3)
  1. ALIMTA [Suspect]
     Indication: LUNG NEOPLASM MALIGNANT
     Dosage: UNK
     Dates: start: 201202, end: 20121016
  2. CARBOPLATIN [Concomitant]
     Dosage: UNK
     Dates: start: 201202
  3. AMIODARONE [Concomitant]

REACTIONS (3)
  - Pneumonitis [Fatal]
  - Respiratory failure [Fatal]
  - Pulmonary embolism [Unknown]
